FAERS Safety Report 17178770 (Version 1)
Quarter: 2019Q4

REPORT INFORMATION
  Report Type: Spontaneous
  Country: CH (occurrence: CH)
  Receive Date: 20191219
  Receipt Date: 20191219
  Transmission Date: 20200122
  Serious: Yes (Other)
  Sender: FDA-Public Use
  Company Number: CH-OTSUKA-2019_041983

PATIENT
  Age: 53 Year
  Sex: Female

DRUGS (3)
  1. VALPROATE [Concomitant]
     Active Substance: VALPROIC ACID
     Indication: MENTAL DISORDER
     Dosage: UNK
     Route: 048
  2. ABILIFY [Suspect]
     Active Substance: ARIPIPRAZOLE
     Indication: MENTAL DISORDER
     Dosage: UNK
     Route: 048
     Dates: start: 20190815, end: 20191006
  3. FLUOXETINE [Suspect]
     Active Substance: FLUOXETINE HYDROCHLORIDE
     Indication: MENTAL DISORDER
     Dosage: DURATION: 25 YEARS
     Route: 065

REACTIONS (4)
  - Hypertonia [Unknown]
  - Akathisia [Recovered/Resolved]
  - Product use in unapproved indication [Unknown]
  - Muscle rigidity [Unknown]

NARRATIVE: CASE EVENT DATE: 201908
